FAERS Safety Report 6280582-8 (Version None)
Quarter: 2009Q3

REPORT INFORMATION
  Report Type: 
  Country: None (occurrence: None)
  Receive Date: 20090724
  Receipt Date: 20080904
  Transmission Date: 20100115
  Serious: No
  Sender: FDA-Public Use
  Company Number: A0747323A

PATIENT
  Sex: Female
  Weight: 97.7 kg

DRUGS (1)
  1. AVANDIA [Suspect]
     Dosage: 4MG PER DAY
     Route: 048

REACTIONS (1)
  - ADVERSE EVENT [None]
